FAERS Safety Report 23759713 (Version 5)
Quarter: 2024Q4

REPORT INFORMATION
  Report Type: Report from Study
  Country: US (occurrence: US)
  Receive Date: 20240419
  Receipt Date: 20241113
  Transmission Date: 20250115
  Serious: Yes (Hospitalization, Other)
  Sender: ABBVIE
  Company Number: US-ABBVIE-5723015

PATIENT
  Age: 79 Year
  Sex: Female
  Weight: 47 kg

DRUGS (2)
  1. HUMIRA [Suspect]
     Active Substance: ADALIMUMAB
     Indication: Colitis ulcerative
     Route: 058
     Dates: start: 20170706
  2. HUMIRA [Suspect]
     Active Substance: ADALIMUMAB
     Route: 058

REACTIONS (7)
  - Pancreatic disorder [Recovering/Resolving]
  - Pancreatitis [Recovered/Resolved]
  - Pancreatic duct obstruction [Recovered/Resolved]
  - Intestinal obstruction [Recovered/Resolved]
  - Back pain [Unknown]
  - Pain [Recovered/Resolved]
  - Pancreatic disorder [Recovered/Resolved]

NARRATIVE: CASE EVENT DATE: 20231001
